FAERS Safety Report 8977042 (Version 1)
Quarter: 2012Q4

REPORT INFORMATION
  Report Type: 
  Country: FR (occurrence: FR)
  Receive Date: 20121220
  Receipt Date: 20121220
  Transmission Date: 20130627
  Serious: Yes (Other)
  Sender: FDA-Public Use
  Company Number: FR-ASTRAZENECA-2012SE93530

PATIENT
  Age: 19837 Day
  Sex: Female

DRUGS (3)
  1. CRESTOR [Suspect]
     Route: 048
     Dates: start: 201208, end: 20121020
  2. IMOVANE [Concomitant]
  3. NORDAZ [Concomitant]

REACTIONS (1)
  - Carbohydrate antigen 19-9 increased [Recovering/Resolving]
